FAERS Safety Report 7842195-3 (Version None)
Quarter: 2011Q4

REPORT INFORMATION
  Report Type: 
  Country: None (occurrence: None)
  Receive Date: 20111024
  Receipt Date: 20111024
  Transmission Date: 20120403
  Serious: No
  Sender: FDA-Public Use
  Company Number: None

PATIENT
  Age: 80 Year
  Sex: Female
  Weight: 49.8957 kg

DRUGS (1)
  1. PRADAXA [Suspect]
     Dosage: 1 TWICE A DAY

REACTIONS (2)
  - ALOPECIA [None]
  - PRODUCT BLISTER PACKAGING ISSUE [None]
